FAERS Safety Report 6702506-9 (Version None)
Quarter: 2010Q2

REPORT INFORMATION
  Report Type: 
  Country: None (occurrence: None)
  Receive Date: 20100429
  Receipt Date: 20100419
  Transmission Date: 20101027
  Serious: Yes (Death, Hospitalization)
  Sender: FDA-Public Use
  Company Number: US-BAXTER-2010BH007110

PATIENT
  Sex: Male

DRUGS (4)
  1. DIANEAL [Suspect]
     Indication: PERITONEAL DIALYSIS
     Route: 033
     Dates: start: 20070101, end: 20100301
  2. MIDODRINE HYDROCHLORIDE [Concomitant]
     Indication: HYPOTENSION
     Route: 065
  3. EPOGEN [Concomitant]
     Indication: DRUG USE FOR UNKNOWN INDICATION
     Route: 065
  4. RENAGEL [Concomitant]
     Indication: DRUG USE FOR UNKNOWN INDICATION
     Route: 065

REACTIONS (3)
  - CALCIPHYLAXIS [None]
  - MYOCARDIAL INFARCTION [None]
  - SKIN ULCER [None]
